FAERS Safety Report 10791826 (Version 1)
Quarter: 2015Q1

REPORT INFORMATION
  Report Type: Spontaneous
  Country: US (occurrence: US)
  Receive Date: 20150213
  Receipt Date: 20150213
  Transmission Date: 20150721
  Serious: Yes (Other)
  Sender: FDA-Public Use
  Company Number: US-CIPLA LTD.-2015US00966

PATIENT

DRUGS (7)
  1. I-METAIODOBENZYLGUANIDINE [Suspect]
     Active Substance: IOBENGUANE
     Indication: NEUROBLASTOMA
     Dosage: 555 MBQKG/1 ON DAY 1
  2. PERIPHERAL BLOOD STEM CELLS [Suspect]
     Active Substance: STEM CELLS
     Indication: NEUROBLASTOMA
  3. I-METAIODOBENZYLGUANIDINE [Suspect]
     Active Substance: IOBENGUANE
     Dosage: 666MBQKG/1 ON DAY 1
  4. CEFIXIME. [Concomitant]
     Active Substance: CEFIXIME
     Indication: DIARRHOEA
     Dosage: UNK, START OF PROTOCOL THERAPY TO DAY 6
     Route: 048
  5. IRINOTECAN [Suspect]
     Active Substance: IRINOTECAN
     Indication: NEUROBLASTOMA
     Dosage: 50MGM/2 PER DOSE, OVER 60-90 MIN ON DAYS 0-4
  6. VINCRISTINE [Suspect]
     Active Substance: VINCRISTINE
     Indication: NEUROBLASTOMA
     Dosage: 2MGM/2, BOLUS ON DAY 0
     Route: 042
  7. CEFPODOXIME [Concomitant]
     Active Substance: CEFPODOXIME
     Indication: DIARRHOEA
     Dosage: UNK, START OF PROTOCOL THERAPY TO DAY  6
     Route: 048

REACTIONS (1)
  - Disease progression [Unknown]
